FAERS Safety Report 11994611 (Version 1)
Quarter: 2016Q1

REPORT INFORMATION
  Report Type: Spontaneous
  Country: US (occurrence: US)
  Receive Date: 20160203
  Receipt Date: 20160203
  Transmission Date: 20160526
  Serious: No
  Sender: FDA-Public Use
  Company Number: US-UCBSA-2015035493

PATIENT
  Sex: Female

DRUGS (1)
  1. KEPPRA [Suspect]
     Active Substance: LEVETIRACETAM
     Indication: MULTIPLE SCLEROSIS
     Dosage: 500 (UNSPECIFIED UNITS) 6 TABS DAILY
     Dates: start: 2014

REACTIONS (1)
  - Gait disturbance [Not Recovered/Not Resolved]
